FAERS Safety Report 9250652 (Version 2)
Quarter: 2013Q4

REPORT INFORMATION
  Report Type: Spontaneous
  Country: GB (occurrence: GB)
  Receive Date: 20130424
  Receipt Date: 20131030
  Transmission Date: 20140711
  Serious: Yes (Death, Life-Threatening, Disabling)
  Sender: FDA-Public Use
  Company Number: GB-JNJFOC-20130412152

PATIENT
  Age: 77 Year
  Sex: Male

DRUGS (8)
  1. XARELTO [Suspect]
     Indication: ANTICOAGULANT THERAPY
     Route: 048
     Dates: start: 20130204, end: 20130304
  2. ASPIRIN [Concomitant]
     Route: 065
  3. BISOPROLOL [Concomitant]
     Route: 065
  4. CANDESARTAN [Concomitant]
     Route: 065
  5. CLOPIDOGREL [Concomitant]
     Route: 065
  6. DEXAMETHASONE W/NEOMYCIN [Concomitant]
     Route: 065
  7. ATORVASTATIN [Concomitant]
     Route: 065
  8. BENDROFLUMETHIAZIDE [Concomitant]
     Route: 065

REACTIONS (7)
  - Haemorrhage intracranial [Fatal]
  - Haemorrhage [Not Recovered/Not Resolved]
  - Mobility decreased [Not Recovered/Not Resolved]
  - Nervous system disorder [Not Recovered/Not Resolved]
  - Contusion [Unknown]
  - Communication disorder [Not Recovered/Not Resolved]
  - Fall [Not Recovered/Not Resolved]
